FAERS Safety Report 8624111-X (Version None)
Quarter: 2012Q3

REPORT INFORMATION
  Report Type: 
  Country: None (occurrence: None)
  Receive Date: 20120827
  Receipt Date: 20120817
  Transmission Date: 20120928
  Serious: Yes (Other)
  Sender: FDA-Public Use
  Company Number: US-ASTRAZENECA-2012SE60259

PATIENT
  Age: 80 Year
  Sex: Female

DRUGS (1)
  1. NEXIUM [Suspect]
     Route: 048

REACTIONS (6)
  - HAEMORRHAGE [None]
  - THROAT IRRITATION [None]
  - HAEMOPTYSIS [None]
  - PHOBIA [None]
  - HYPOCOAGULABLE STATE [None]
  - DRUG DOSE OMISSION [None]
